FAERS Safety Report 10378962 (Version 1)
Quarter: 2014Q3

REPORT INFORMATION
  Report Type: Spontaneous
  Country: CN (occurrence: CN)
  Receive Date: 20140812
  Receipt Date: 20140812
  Transmission Date: 20150326
  Serious: Yes (Other)
  Sender: FDA-Public Use
  Company Number: CN-PFIZER INC-2014221070

PATIENT
  Age: 60 Year
  Sex: Male

DRUGS (2)
  1. LIPITOR [Suspect]
     Active Substance: ATORVASTATIN CALCIUM
     Dosage: 20 MG, 1X/DAY
     Route: 048
     Dates: start: 20130124, end: 20130128
  2. NORVASC [Concomitant]
     Active Substance: AMLODIPINE BESYLATE
     Dosage: 5 MG, 1X/DAY
     Route: 048
     Dates: start: 20130124, end: 20130206

REACTIONS (4)
  - Cerebral infarction [Unknown]
  - Hepatic enzyme increased [Recovering/Resolving]
  - Pneumonia [Unknown]
  - Hypertension [Unknown]

NARRATIVE: CASE EVENT DATE: 20130128
